FAERS Safety Report 15247559 (Version 2)
Quarter: 2018Q3

REPORT INFORMATION
  Report Type: Spontaneous
  Country: US (occurrence: US)
  Receive Date: 20180807
  Receipt Date: 20180810
  Transmission Date: 20181010
  Serious: Yes (Hospitalization, Other)
  Sender: FDA-Public Use
  Company Number: US-ASTELLAS-2018US034498

PATIENT
  Age: 72 Year
  Sex: Male

DRUGS (8)
  1. AMPHOTERICIN B, LIPOSOME [Suspect]
     Active Substance: AMPHOTERICIN B
     Indication: SUBDURAL HAEMATOMA
     Route: 065
  2. VALGANCICLOVIR. [Concomitant]
     Active Substance: VALGANCICLOVIR
     Indication: ANTIVIRAL PROPHYLAXIS
     Route: 065
     Dates: start: 2015
  3. TACROLIMUS. [Suspect]
     Active Substance: TACROLIMUS
     Indication: RENAL TRANSPLANT
     Dosage: UNK UNK, TWICE DAILY (5 MG MORNING 4 MG EVENING)
     Route: 065
     Dates: start: 2015
  4. TACROLIMUS. [Suspect]
     Active Substance: TACROLIMUS
     Dosage: UNK UNK, UNKNOWN FREQ.
     Route: 065
  5. AMPHOTERICIN B, LIPOSOME [Suspect]
     Active Substance: AMPHOTERICIN B
     Indication: FUNGAL INFECTION
     Route: 065
  6. PREDNISONE. [Suspect]
     Active Substance: PREDNISONE
     Dosage: UNK UNK, UNKNOWN FREQ.
     Route: 065
  7. PREDNISONE. [Suspect]
     Active Substance: PREDNISONE
     Indication: RENAL TRANSPLANT
     Route: 065
     Dates: start: 2015
  8. LEFLUNOMIDE. [Concomitant]
     Active Substance: LEFLUNOMIDE
     Indication: BK VIRUS INFECTION
     Route: 065
     Dates: start: 2015

REACTIONS (15)
  - Pulmonary mass [Recovered/Resolved]
  - Pulmonary mass [Unknown]
  - Interstitial lung disease [Recovering/Resolving]
  - Fall [Unknown]
  - Kidney transplant rejection [Unknown]
  - Acute kidney injury [Unknown]
  - Subdural haematoma [Unknown]
  - Phaehyphomycosis [Recovered/Resolved]
  - Brain abscess [Recovered/Resolved]
  - Polyomavirus-associated nephropathy [Recovering/Resolving]
  - Fungal infection [Unknown]
  - BK virus infection [Recovering/Resolving]
  - Pulmonary cavitation [Recovering/Resolving]
  - Granuloma [Recovering/Resolving]
  - Immunosuppressant drug level increased [Recovering/Resolving]

NARRATIVE: CASE EVENT DATE: 2015
